FAERS Safety Report 6200184-9 (Version None)
Quarter: 2009Q2

REPORT INFORMATION
  Report Type: 
  Country: None (occurrence: None)
  Receive Date: 20090522
  Receipt Date: 20090512
  Transmission Date: 20091009
  Serious: Yes (Other)
  Sender: FDA-Public Use
  Company Number: JP-PFIZER INC-2009202321

PATIENT
  Age: 52 Year

DRUGS (6)
  1. ZOLOFT [Suspect]
     Indication: DEPRESSION
     Dosage: 100 MG, UNK
     Route: 048
  2. TOPIRAMATE [Suspect]
     Indication: DYSKINESIA
     Route: 048
  3. TOPIRAMATE [Suspect]
     Indication: EPILEPSY
  4. RIZE [Concomitant]
  5. WYPAX [Concomitant]
  6. DEPAS [Concomitant]

REACTIONS (5)
  - DEPRESSION [None]
  - DYSKINESIA [None]
  - FALL [None]
  - ORTHOSTATIC HYPOTENSION [None]
  - SUICIDAL IDEATION [None]
